FAERS Safety Report 7017558-9 (Version None)
Quarter: 2010Q3

REPORT INFORMATION
  Report Type: 
  Country: None (occurrence: None)
  Receive Date: 20100928
  Receipt Date: 20090803
  Transmission Date: 20110219
  Serious: No
  Sender: FDA-Public Use
  Company Number: US-MYLANLABS-2009S1013978

PATIENT
  Age: 59 Year
  Sex: Male
  Weight: 83.01 kg

DRUGS (1)
  1. FLUOXETINE HYDROCHLORIDE TABLETS [Suspect]
     Indication: DEPRESSION
     Route: 048
     Dates: start: 20060101, end: 20060101

REACTIONS (2)
  - DYSURIA [None]
  - POLLAKIURIA [None]
